FAERS Safety Report 13838559 (Version 1)
Quarter: 2017Q3

REPORT INFORMATION
  Report Type: Spontaneous
  Country: US (occurrence: US)
  Receive Date: 20170804
  Receipt Date: 20170804
  Transmission Date: 20171127
  Serious: Yes (Hospitalization)
  Sender: FDA-Public Use
  Company Number: None

PATIENT
  Sex: Female
  Weight: 74.7 kg

DRUGS (1)
  1. BYDUREON [Suspect]
     Active Substance: EXENATIDE
     Indication: DIABETES MELLITUS
     Dosage: ?          OTHER ROUTE:INJECTED INTO STOMACH?

REACTIONS (10)
  - Otorrhoea [None]
  - Aphonia [None]
  - Polyp [None]
  - Dysphonia [None]
  - Uterine cyst [None]
  - Cyst [None]
  - Menopause [None]
  - Neoplasm skin [None]
  - Gastric neoplasm [None]
  - Uterine neoplasm [None]

NARRATIVE: CASE EVENT DATE: 20160127
